FAERS Safety Report 22153274 (Version 3)
Quarter: 2023Q2

REPORT INFORMATION
  Report Type: Spontaneous
  Country: FR (occurrence: FR)
  Receive Date: 20230329
  Receipt Date: 20230602
  Transmission Date: 20230722
  Serious: Yes (Hospitalization, Other)
  Sender: FDA-Public Use
  Company Number: FR-ALXN-A202303817

PATIENT
  Age: 68 Year
  Sex: Female
  Weight: 80 kg

DRUGS (10)
  1. ULTOMIRIS [Suspect]
     Active Substance: RAVULIZUMAB-CWVZ
     Indication: Myasthenia gravis
     Dosage: 3300 MG,  EVERY 8 WEEKS
     Route: 065
     Dates: start: 20221129
  2. ACTONEL [Concomitant]
     Active Substance: RISEDRONATE SODIUM
     Indication: Myasthenia gravis
     Dosage: 35 MG, QW
     Route: 065
     Dates: start: 2022
  3. ATARAX                             /00058401/ [Concomitant]
     Indication: Myasthenia gravis
     Dosage: 25 MG, QD
     Route: 065
     Dates: start: 2022
  4. PREDNISONE [Concomitant]
     Active Substance: PREDNISONE
     Indication: Myasthenia gravis
     Dosage: 9 MG, QD
     Route: 065
     Dates: start: 202109
  5. LEVEMIR [Concomitant]
     Active Substance: INSULIN DETEMIR
     Indication: Myasthenia gravis
     Dosage: 20 IU, QD
     Route: 065
  6. MYTELASE [Concomitant]
     Active Substance: AMBENONIUM CHLORIDE
     Indication: Myasthenia gravis
     Dosage: 10 MG, TID
     Route: 065
     Dates: start: 2018
  7. ORACILLINE                         /00001801/ [Concomitant]
     Indication: Myasthenia gravis
     Dosage: 1MUI , BID
     Route: 065
     Dates: start: 2022
  8. PERINDOPRIL [Concomitant]
     Active Substance: PERINDOPRIL
     Indication: Myasthenia gravis
     Dosage: 4 MG, QD
     Route: 065
  9. XARELTO [Concomitant]
     Active Substance: RIVAROXABAN
     Indication: Myasthenia gravis
     Dosage: 20 MG, QD
     Route: 065
     Dates: start: 2021
  10. ZOPICLONE [Concomitant]
     Active Substance: ZOPICLONE
     Indication: Myasthenia gravis
     Dosage: 7.5 MG, QD
     Route: 065
     Dates: start: 2022

REACTIONS (3)
  - Laryngeal dyspnoea [Unknown]
  - Respiratory failure [Unknown]
  - Drug ineffective [Unknown]

NARRATIVE: CASE EVENT DATE: 20221205
